FAERS Safety Report 16731013 (Version 2)
Quarter: 2019Q3

REPORT INFORMATION
  Report Type: Spontaneous
  Country: US (occurrence: US)
  Receive Date: 20190822
  Receipt Date: 20190906
  Transmission Date: 20191005
  Serious: No
  Sender: FDA-Public Use
  Company Number: US-PFIZER INC-2019357427

PATIENT
  Age: 42 Year
  Sex: Female

DRUGS (1)
  1. ELETRIPTAN HBR [Suspect]
     Active Substance: ELETRIPTAN HYDROBROMIDE
     Dosage: 40 MG, UNK
     Dates: start: 2018

REACTIONS (4)
  - Musculoskeletal pain [Not Recovered/Not Resolved]
  - Abdominal pain upper [Unknown]
  - Chest pain [Not Recovered/Not Resolved]
  - Dyspepsia [Unknown]
